FAERS Safety Report 9722498 (Version 1)
Quarter: 2013Q4

REPORT INFORMATION
  Report Type: Spontaneous
  Country: US (occurrence: US)
  Receive Date: 20131202
  Receipt Date: 20131202
  Transmission Date: 20140711
  Serious: No
  Sender: FDA-Public Use
  Company Number: US-JNJFOC-20131112201

PATIENT
  Age: 19 Year
  Sex: Male

DRUGS (3)
  1. INVEGA SUSTENNA [Suspect]
     Indication: BIPOLAR DISORDER
     Route: 030
     Dates: start: 201308
  2. INVEGA SUSTENNA [Suspect]
     Indication: SCHIZOAFFECTIVE DISORDER
     Route: 030
     Dates: start: 201308
  3. VISTARIL [Concomitant]
     Indication: SLEEP DISORDER
     Dosage: 50 TO 100 MG NIGHT DOSE
     Route: 048
     Dates: start: 201308

REACTIONS (2)
  - Breast mass [Not Recovered/Not Resolved]
  - Blood prolactin increased [Unknown]
